FAERS Safety Report 16631050 (Version 6)
Quarter: 2020Q4

REPORT INFORMATION
  Report Type: Spontaneous
  Country: BG (occurrence: BG)
  Receive Date: 20190725
  Receipt Date: 20201214
  Transmission Date: 20210113
  Serious: Yes (Hospitalization, Other)
  Sender: FDA-Public Use
  Company Number: BG-MYLANLABS-2019M1068807

PATIENT
  Age: 63 Year
  Sex: Male

DRUGS (16)
  1. BISOPROLOL FUMARATE. [Suspect]
     Active Substance: BISOPROLOL FUMARATE
     Indication: EJECTION FRACTION
  2. GLICLAZIDE [Suspect]
     Active Substance: GLICLAZIDE
     Indication: CARDIAC FAILURE
     Dosage: 60 MG, QD
     Route: 065
  3. PERINDOPRIL [Suspect]
     Active Substance: PERINDOPRIL
     Indication: CARDIAC FAILURE
     Dosage: 4 MG, UNK
     Route: 065
  4. SPIRONOLACTONE. [Suspect]
     Active Substance: SPIRONOLACTONE
     Dosage: PKGID=QD
  5. TORASEMIDE [Suspect]
     Active Substance: TORSEMIDE
     Dosage: 200 MILLIGRAM, QD
     Route: 065
  6. PERINDOPRIL [Suspect]
     Active Substance: PERINDOPRIL
     Indication: EJECTION FRACTION
  7. GLICLAZIDE [Suspect]
     Active Substance: GLICLAZIDE
     Indication: EJECTION FRACTION
  8. SPIRONOLACTONE. [Suspect]
     Active Substance: SPIRONOLACTONE
     Indication: CARDIAC FAILURE
     Dosage: 25 MG, QD
     Route: 065
  9. HUMAN INSULIN MIX [Concomitant]
     Active Substance: INSULIN HUMAN
     Indication: DIABETES MELLITUS
     Dosage: 10 IU, UNK
  10. SINTROM [Suspect]
     Active Substance: ACENOCOUMAROL
     Indication: ANTICOAGULANT THERAPY
  11. TORASEMIDE [Suspect]
     Active Substance: TORSEMIDE
     Dosage: 10 MILLIGRAM, QD
     Route: 065
  12. TORASEMIDE [Suspect]
     Active Substance: TORSEMIDE
     Indication: CARDIAC FAILURE
     Dosage: 10 MG, BID
     Route: 065
  13. ACETYLSALICYLIC ACID [Suspect]
     Active Substance: ASPIRIN
     Indication: CARDIAC FAILURE
     Dosage: 100 MG, QD
     Route: 065
  14. SINTROM [Suspect]
     Active Substance: ACENOCOUMAROL
     Indication: CARDIAC FAILURE
     Dosage: UNK, UNK
     Route: 065
  15. TORASEMIDE [Suspect]
     Active Substance: TORSEMIDE
     Dosage: 200 MG, BID
     Route: 065
  16. BISOPROLOL FUMARATE. [Suspect]
     Active Substance: BISOPROLOL FUMARATE
     Indication: CARDIAC FAILURE
     Dosage: 5 MG, QD
     Route: 065

REACTIONS (15)
  - Skin necrosis [Recovered/Resolved]
  - Drug ineffective [Recovered/Resolved]
  - Proteinuria [Unknown]
  - Intentional product misuse [Unknown]
  - Skin lesion [Recovering/Resolving]
  - Haematuria [Unknown]
  - Petechiae [Recovering/Resolving]
  - Microalbuminuria [Unknown]
  - Rash [Recovering/Resolving]
  - Glomerular filtration rate decreased [Unknown]
  - Orthopnoea [Unknown]
  - Cardiac failure [Recovered/Resolved]
  - Blister [Recovered/Resolved]
  - Product use in unapproved indication [Unknown]
  - Off label use [Recovered/Resolved]

NARRATIVE: CASE EVENT DATE: 201805
